FAERS Safety Report 23331687 (Version 1)
Quarter: 2023Q4

REPORT INFORMATION
  Report Type: Spontaneous
  Country: US (occurrence: US)
  Receive Date: 20231222
  Receipt Date: 20231222
  Transmission Date: 20240109
  Serious: No
  Sender: FDA-Public Use
  Company Number: US-BEH-2023166559

PATIENT
  Sex: Female

DRUGS (8)
  1. HAEGARDA [Suspect]
     Active Substance: HUMAN C1-ESTERASE INHIBITOR
     Indication: Hereditary angioedema
     Dosage: 5000 INTERNATIONAL UNIT, BIW
     Route: 058
  2. HAEGARDA [Suspect]
     Active Substance: HUMAN C1-ESTERASE INHIBITOR
     Indication: Prophylaxis
  3. FAMOTIDINE [Concomitant]
     Active Substance: FAMOTIDINE
  4. HYDROXYZINE [Concomitant]
     Active Substance: HYDROXYZINE HYDROCHLORIDE
  5. LEVOCETIRIN [Concomitant]
  6. LEVOTHYROXINE [Concomitant]
     Active Substance: LEVOTHYROXINE
  7. LIOTHYRONINE [Concomitant]
     Active Substance: LIOTHYRONINE
  8. METOPROLOL [Concomitant]
     Active Substance: METOPROLOL

REACTIONS (10)
  - Skin discolouration [Unknown]
  - Fall [Unknown]
  - Psychiatric symptom [Unknown]
  - Depressed mood [Unknown]
  - Device issue [Unknown]
  - Product preparation issue [Unknown]
  - Device malfunction [Unknown]
  - No adverse event [Unknown]
  - Product dose omission in error [Unknown]
  - Economic problem [Unknown]
